FAERS Safety Report 12537362 (Version 1)
Quarter: 2016Q3

REPORT INFORMATION
  Report Type: Spontaneous
  Country: FR (occurrence: FR)
  Receive Date: 20160707
  Receipt Date: 20160707
  Transmission Date: 20161109
  Serious: Yes (Disabling)
  Sender: FDA-Public Use
  Company Number: FR-PFIZER INC-2016317255

PATIENT
  Age: 63 Year
  Sex: Male

DRUGS (12)
  1. CYCLOPHOSPHAMIDE. [Concomitant]
     Active Substance: CYCLOPHOSPHAMIDE
     Indication: NON-HODGKIN^S LYMPHOMA
     Dosage: 300 MG/M2, ON DAY 1
     Route: 042
     Dates: start: 20151224
  2. MABTHERA [Concomitant]
     Active Substance: RITUXIMAB
     Indication: NON-HODGKIN^S LYMPHOMA
     Dosage: 375 MG/M2, UNK
     Route: 042
     Dates: start: 20151230
  3. CYCLOPHOSPHAMIDE. [Concomitant]
     Active Substance: CYCLOPHOSPHAMIDE
     Dosage: 750 MG/M2, UNK
     Dates: start: 20151230
  4. PREDNISOLONE. [Concomitant]
     Active Substance: PREDNISOLONE
     Indication: NON-HODGKIN^S LYMPHOMA
     Dosage: 60 MG/M2, FROM DAY 1 TO DAY 7
     Route: 048
     Dates: start: 20151224
  5. VINCRISTINE SULFATE. [Suspect]
     Active Substance: VINCRISTINE SULFATE
     Dosage: 1.4 MG/M2, UNK
     Dates: start: 20151230, end: 20160204
  6. PREDNISOLONE. [Concomitant]
     Active Substance: PREDNISOLONE
     Dosage: 60 MG/M2, FROM DAY 1 TO DAY 5
     Dates: start: 20151230
  7. VINCRISTINE SULFATE. [Suspect]
     Active Substance: VINCRISTINE SULFATE
     Indication: NON-HODGKIN^S LYMPHOMA
     Dosage: 1 MG/M2, ON DAY1
     Route: 042
     Dates: start: 20151224
  8. LERCAPRESS [Concomitant]
     Active Substance: ENALAPRIL MALEATE\LERCANIDIPINE HYDROCHLORIDE
     Dosage: UNK
  9. DOXORUBICIN HYDROCHLORIDE. [Concomitant]
     Active Substance: DOXORUBICIN HYDROCHLORIDE
     Indication: NON-HODGKIN^S LYMPHOMA
     Dosage: 50 MG/M2, UNK
     Route: 042
     Dates: start: 20151230
  10. ESIDREX [Concomitant]
     Active Substance: HYDROCHLOROTHIAZIDE
     Dosage: UNK
  11. MIFLONIL [Concomitant]
     Active Substance: BUDESONIDE
     Dosage: UNK
  12. SEEBRI BREEZHALER [Concomitant]
     Active Substance: GLYCOPYRROLATE
     Dosage: UNK

REACTIONS (1)
  - Polyneuropathy [Recovering/Resolving]

NARRATIVE: CASE EVENT DATE: 20160119
